FAERS Safety Report 10803914 (Version 1)
Quarter: 2015Q1

REPORT INFORMATION
  Report Type: Spontaneous
  Country: CH (occurrence: CH)
  Receive Date: 20150217
  Receipt Date: 20150217
  Transmission Date: 20150721
  Serious: Yes (Hospitalization)
  Sender: FDA-Public Use
  Company Number: CH-ACTAVIS-2015-02248

PATIENT
  Age: 82 Year
  Sex: Female
  Weight: 68 kg

DRUGS (14)
  1. PREDNISONE. [Concomitant]
     Active Substance: PREDNISONE
     Indication: DERMATOMYOSITIS
     Dosage: 20 MG, DAILY
     Route: 048
     Dates: start: 201309
  2. PLAQUENIL [Concomitant]
     Active Substance: HYDROXYCHLOROQUINE SULFATE
     Indication: DERMATOMYOSITIS
     Dosage: 300 MG, DAILY
     Route: 048
     Dates: start: 201309
  3. CIPRALEX [Concomitant]
     Active Substance: ESCITALOPRAM OXALATE
     Indication: DEPRESSION
     Dosage: 5 MG, DAILY
     Route: 060
     Dates: end: 20141030
  4. NEXIUM [Concomitant]
     Active Substance: ESOMEPRAZOLE MAGNESIUM
     Indication: DYSPEPSIA
     Dosage: 40 MG, DAILY
     Route: 048
  5. TORASEMIDE SANDOZ [Concomitant]
     Indication: ESSENTIAL HYPERTENSION
     Dosage: 15 MG, DAILY
     Route: 048
  6. CIPROFLOXACIN. [Suspect]
     Active Substance: CIPROFLOXACIN
     Indication: URINARY TRACT INFECTION
     Dosage: 500 MG, BID
     Route: 048
     Dates: start: 20141129, end: 20141207
  7. ARIXTRA [Concomitant]
     Active Substance: FONDAPARINUX SODIUM
     Indication: THROMBOSIS PROPHYLAXIS
     Dosage: 2.5 MG, DAILY
     Route: 058
     Dates: start: 20141023
  8. METHOTREXATE [Concomitant]
     Active Substance: METHOTREXATE
     Indication: DERMATOMYOSITIS
     Dosage: 15 MG, 1/TWO WEEKS
     Route: 058
     Dates: start: 201309, end: 20141129
  9. ASPIRIN BAYER [Concomitant]
     Active Substance: ASPIRIN
     Indication: MYOCARDIAL INFARCTION
     Dosage: 100 MG, DAILY
     Route: 048
  10. FOLIC ACID. [Concomitant]
     Active Substance: FOLIC ACID
     Indication: ANAEMIA FOLATE DEFICIENCY
     Dosage: 5 MG, 1/TWO WEEKS
     Route: 048
     Dates: start: 201309, end: 20141129
  11. ALDACTONE [Concomitant]
     Active Substance: SPIRONOLACTONE
     Indication: ESSENTIAL HYPERTENSION
     Dosage: 25 MG, DAILY
     Route: 048
  12. CALCIMAGON D3 [Concomitant]
     Active Substance: CALCIUM\CHOLECALCIFEROL
     Indication: VITAMIN D DEFICIENCY
     Dosage: 2 DF, DAILY
     Route: 048
  13. LISINOPRIL ACTAVIS                 /00894001/ [Concomitant]
     Indication: ESSENTIAL HYPERTENSION
     Dosage: 2.5 MG, DAILY
     Route: 048
  14. BELOC                              /00030002/ [Concomitant]
     Indication: ESSENTIAL HYPERTENSION
     Dosage: 50 MG, DAILY
     Route: 048
     Dates: start: 201309

REACTIONS (1)
  - Drug eruption [Recovering/Resolving]

NARRATIVE: CASE EVENT DATE: 20141207
